FAERS Safety Report 5408107-7 (Version None)
Quarter: 2007Q3

REPORT INFORMATION
  Report Type: 
  Country: None (occurrence: None)
  Receive Date: 20070806
  Receipt Date: 20070806
  Transmission Date: 20080115
  Serious: Yes (Hospitalization)
  Sender: FDA-Public Use
  Company Number: None

PATIENT
  Age: 85 Year
  Sex: Male

DRUGS (2)
  1. ASPIRIN [Suspect]
     Indication: PROPHYLAXIS
     Dosage: 325MG EVERY DAY PO
     Route: 048
     Dates: start: 20070326, end: 20070412
  2. NAPROXEN [Suspect]
     Indication: PAIN
     Dosage: 375MG BID PO
     Route: 048
     Dates: start: 20050523, end: 20070412

REACTIONS (2)
  - ANAEMIA [None]
  - GASTRIC HAEMORRHAGE [None]
